FAERS Safety Report 7905397-3 (Version None)
Quarter: 2011Q4

REPORT INFORMATION
  Report Type: 
  Country: None (occurrence: None)
  Receive Date: 20111109
  Receipt Date: 20111104
  Transmission Date: 20120403
  Serious: Yes (Death)
  Sender: FDA-Public Use
  Company Number: US-MERCK-1110USA03844

PATIENT
  Age: 57 Year
  Sex: Female

DRUGS (1)
  1. JANUMET [Suspect]
     Indication: DIABETES MELLITUS
     Route: 048

REACTIONS (1)
  - DEATH [None]
